FAERS Safety Report 13433355 (Version 9)
Quarter: 2017Q4

REPORT INFORMATION
  Report Type: Report from Study
  Country: CO (occurrence: CO)
  Receive Date: 20170412
  Receipt Date: 20171201
  Transmission Date: 20180320
  Serious: Yes (Hospitalization)
  Sender: FDA-Public Use
  Company Number: PHHY2017CO052781

PATIENT
  Age: 71 Year
  Sex: Female
  Weight: 52 kg

DRUGS (6)
  1. NIPRINA [Concomitant]
     Indication: PRODUCT USED FOR UNKNOWN INDICATION
     Route: 065
  2. CARVEDILOL. [Concomitant]
     Active Substance: CARVEDILOL
     Indication: PRODUCT USED FOR UNKNOWN INDICATION
     Route: 065
  3. FUROSEMIDE. [Concomitant]
     Active Substance: FUROSEMIDE
     Indication: PRODUCT USED FOR UNKNOWN INDICATION
     Route: 065
  4. INSULIN [Concomitant]
     Active Substance: INSULIN NOS
     Indication: PRODUCT USED FOR UNKNOWN INDICATION
     Route: 065
  5. ENTRESTO [Suspect]
     Active Substance: SACUBITRIL\VALSARTAN
     Indication: CARDIAC FAILURE
     Dosage: 100 MG, Q12H
     Route: 048
     Dates: start: 20170308
  6. ASAWIN [Concomitant]
     Active Substance: ASPIRIN
     Indication: PRODUCT USED FOR UNKNOWN INDICATION
     Route: 065

REACTIONS (19)
  - Depression [Unknown]
  - Abdominal distension [Recovering/Resolving]
  - Swelling [Unknown]
  - Fluid retention [Unknown]
  - Fatigue [Unknown]
  - Hepatitis [Unknown]
  - Cardiomegaly [Unknown]
  - Cardiac failure [Unknown]
  - Oedema [Unknown]
  - Peripheral swelling [Unknown]
  - Insomnia [Unknown]
  - Cough [Unknown]
  - Heart rate irregular [Unknown]
  - Weight increased [Unknown]
  - Discomfort [Unknown]
  - Crying [Unknown]
  - Hypoglycaemia [Unknown]
  - Asphyxia [Unknown]
  - Breast swelling [Recovering/Resolving]

NARRATIVE: CASE EVENT DATE: 20171013
